FAERS Safety Report 6743925-4 (Version None)
Quarter: 2010Q2

REPORT INFORMATION
  Report Type: 
  Country: None (occurrence: None)
  Receive Date: 20100527
  Receipt Date: 20100513
  Transmission Date: 20101027
  Serious: Yes (Other)
  Sender: FDA-Public Use
  Company Number: PHHY2010CA31443

PATIENT
  Age: 79 Year
  Sex: Female

DRUGS (1)
  1. ELIDEL [Suspect]
     Indication: ECZEMA
     Route: 061

REACTIONS (4)
  - APPLICATION SITE BLEEDING [None]
  - APPLICATION SITE EROSION [None]
  - APPLICATION SITE RASH [None]
  - APPLICATION SITE SWELLING [None]
